FAERS Safety Report 8831633 (Version 1)
Quarter: 2012Q4

REPORT INFORMATION
  Report Type: 
  Country: US (occurrence: US)
  Receive Date: 20121009
  Receipt Date: 20121009
  Transmission Date: 20130627
  Serious: Yes (Life-Threatening, Other)
  Sender: FDA-Public Use
  Company Number: US-ELI_LILLY_AND_COMPANY-US201210002158

PATIENT
  Age: 62 Year
  Sex: Female

DRUGS (5)
  1. EFFIENT [Suspect]
     Indication: STENT PLACEMENT
     Dosage: 60 mg, single loading dose
     Dates: start: 20120810
  2. EFFIENT [Suspect]
     Dosage: 10 mg, qd maintenance dose
  3. ASPIRIN [Concomitant]
  4. HEPARIN [Concomitant]
  5. INTEGRELIN [Concomitant]

REACTIONS (2)
  - Haemorrhage [Unknown]
  - Coma [Not Recovered/Not Resolved]
